FAERS Safety Report 21256401 (Version 2)
Quarter: 2022Q4

REPORT INFORMATION
  Report Type: Spontaneous
  Country: JP (occurrence: JP)
  Receive Date: 20220826
  Receipt Date: 20221018
  Transmission Date: 20230113
  Serious: Yes (Death, Other)
  Sender: FDA-Public Use
  Company Number: JP-MALLINCKRODT-T202204519

PATIENT
  Age: 55 Year
  Sex: Male
  Weight: 93 kg

DRUGS (15)
  1. NITRIC OXIDE [Suspect]
     Active Substance: NITRIC OXIDE
     Indication: Pulmonary hypertension
     Dosage: 15 PPM, INHALATION
     Route: 055
     Dates: start: 20220424, end: 20220425
  2. NITRIC OXIDE [Suspect]
     Active Substance: NITRIC OXIDE
     Indication: Aortic stent insertion
     Dosage: 10 PPM, INHALATION
     Route: 055
     Dates: start: 20220425, end: 20220425
  3. NITRIC OXIDE [Suspect]
     Active Substance: NITRIC OXIDE
     Indication: Prophylaxis
  4. ACETAMINOPHEN [Concomitant]
     Active Substance: ACETAMINOPHEN
     Indication: Analgesic therapy
     Dosage: 1000 MILLIGRAM, QD
     Route: 042
     Dates: start: 20220424, end: 20220424
  5. DEXMEDETOMIDINE [Concomitant]
     Active Substance: DEXMEDETOMIDINE
     Indication: Sedation
     Dosage: 200 ?G/50 ML (3 ML/H- 5 ML/H)
     Route: 042
     Dates: start: 20220424, end: 20220424
  6. DEXMEDETOMIDINE [Concomitant]
     Active Substance: DEXMEDETOMIDINE
     Dosage: 200 ?G/50 ML (2 ML/H)
     Route: 042
     Dates: start: 20220424, end: 20220424
  7. PROPOFOL [Concomitant]
     Active Substance: PROPOFOL
     Indication: Sedation
     Dosage: UNK, 3-10 ML/H
     Route: 042
     Dates: start: 20220424, end: 20220503
  8. CEFAZOLIN SODIUM [Concomitant]
     Active Substance: CEFAZOLIN SODIUM
     Indication: Prophylaxis
     Dosage: 1 GRAM, TID
     Route: 042
     Dates: start: 20220424, end: 20220426
  9. DOBUTAMINE [Concomitant]
     Active Substance: DOBUTAMINE HYDROCHLORIDE
     Indication: Hypotension
     Dosage: 150 MG, 0.3% (1-5 ML/H)
     Route: 042
     Dates: start: 20220424, end: 20220426
  10. DOPAMINE HYDROCHLORIDE [Concomitant]
     Active Substance: DOPAMINE HYDROCHLORIDE
     Indication: Hypotension
     Dosage: 1-5 ML/H
     Route: 042
     Dates: start: 20220424, end: 20220425
  11. NOREPINEPHRINE [Concomitant]
     Active Substance: NOREPINEPHRINE
     Indication: Hypotension
     Dosage: 3 MG/50 ML (1-10 ML/H)
     Route: 042
     Dates: start: 20220424, end: 20220425
  12. MEYLON [Concomitant]
     Active Substance: SODIUM BICARBONATE
     Indication: Acidosis
     Dosage: 100 MILLILITER, QD
     Route: 042
     Dates: start: 20220424, end: 20220424
  13. OMEPRAZOLE [Concomitant]
     Active Substance: OMEPRAZOLE
     Indication: Prophylaxis
     Dosage: 2 MILLIGRAM, BID (2 TIMES)
     Route: 042
     Dates: start: 20220424, end: 20220507
  14. HAPTOGLOBIN [Concomitant]
     Indication: Haemolysis
     Dosage: 2000 UNITS, QD
     Route: 042
     Dates: start: 20220424, end: 20220424
  15. FRUCTOSE\GLYCERIN [Concomitant]
     Active Substance: FRUCTOSE\GLYCERIN
     Indication: Brain oedema
     Dosage: 200 MILLILITER, QID
     Route: 042
     Dates: start: 20220424, end: 20220430

REACTIONS (3)
  - Renal failure [Fatal]
  - Sepsis [Fatal]
  - Methaemoglobinaemia [Recovered/Resolved]

NARRATIVE: CASE EVENT DATE: 20220424
